FAERS Safety Report 7754153-8 (Version None)
Quarter: 2011Q3

REPORT INFORMATION
  Report Type: 
  Country: None (occurrence: None)
  Receive Date: 20110915
  Receipt Date: 20110906
  Transmission Date: 20111222
  Serious: Yes (Hospitalization)
  Sender: FDA-Public Use
  Company Number: US-BAYER-2011-085629

PATIENT
  Age: 30 Year
  Sex: Female
  Weight: 97.24 kg

DRUGS (11)
  1. YAZ [Suspect]
     Indication: UTERINE HAEMORRHAGE
     Dosage: UNK
     Dates: start: 20080808, end: 20080818
  2. FERROUS GLUCONATE [Concomitant]
     Dosage: 324 MG, TID
     Route: 048
  3. LOPRESSOR [Concomitant]
  4. FERGON [Concomitant]
  5. DOCUSATE SODIUM [Concomitant]
     Dosage: 100 MG, QD
     Route: 048
  6. METOPROLOL TARTRATE [Concomitant]
     Indication: HYPERTENSION
     Dosage: 100 MG, BID
     Route: 048
     Dates: start: 20060101, end: 20090101
  7. LISINOPRIL AND HYDROCHLOROTHIAZIDE [Concomitant]
     Indication: HYPERTENSION
     Dosage: UNK
     Dates: start: 20060101
  8. COLACE [Concomitant]
  9. LEXAPRO [Concomitant]
     Indication: DEPRESSION
     Dosage: 20 MG, QD
     Route: 048
     Dates: start: 20060101, end: 20080101
  10. IBUPROFEN [Concomitant]
  11. ETHINYL ESTRADIOL AND NORETHINDRONE [Concomitant]
     Dosage: UNK
     Dates: start: 20080722

REACTIONS (4)
  - DEEP VEIN THROMBOSIS [None]
  - EMOTIONAL DISTRESS [None]
  - PULMONARY EMBOLISM [None]
  - PAIN [None]
